FAERS Safety Report 5564603-3 (Version None)
Quarter: 2007Q4

REPORT INFORMATION
  Report Type: 
  Country: None (occurrence: None)
  Receive Date: 20071218
  Receipt Date: 20071213
  Transmission Date: 20080405
  Serious: Yes (Other)
  Sender: FDA-Public Use
  Company Number: US-ASTRAZENECA-2007UW28358

PATIENT
  Age: 5 Year
  Sex: Male

DRUGS (2)
  1. PULMICORT FLEXHALER [Suspect]
     Route: 055
     Dates: start: 20071101, end: 20071201
  2. ASTELIN [Concomitant]

REACTIONS (2)
  - ANXIETY [None]
  - FEAR OF DEATH [None]
